FAERS Safety Report 7516185-4 (Version None)
Quarter: 2011Q2

REPORT INFORMATION
  Report Type: 
  Country: None (occurrence: None)
  Receive Date: 20110601
  Receipt Date: 20110525
  Transmission Date: 20111010
  Serious: Yes (Other)
  Sender: FDA-Public Use
  Company Number: US-AMGEN-USASP2011012659

PATIENT
  Age: 21 Year
  Sex: Male

DRUGS (8)
  1. NEULASTA [Suspect]
  2. VINBLASTINE SULFATE [Concomitant]
  3. NEUPOGEN [Suspect]
     Indication: NEUTROPENIA
  4. BLEOMYCIN SULFATE [Concomitant]
  5. NEULASTA [Suspect]
     Indication: NEUTROPENIA
     Dates: start: 20100121
  6. NEULASTA [Suspect]
  7. DACARBAZINE [Concomitant]
  8. ADRIAMYCIN PFS [Concomitant]

REACTIONS (10)
  - WHITE BLOOD CELL COUNT INCREASED [None]
  - INFECTION [None]
  - PAIN [None]
  - BLOOD LACTATE DEHYDROGENASE INCREASED [None]
  - MYALGIA [None]
  - BACK PAIN [None]
  - HEADACHE [None]
  - BONE PAIN [None]
  - LUNG INFILTRATION [None]
  - PYREXIA [None]
